FAERS Safety Report 4798325-3 (Version None)
Quarter: 2005Q4

REPORT INFORMATION
  Report Type: 
  Country: None (occurrence: None)
  Receive Date: 20051011
  Receipt Date: 20050923
  Transmission Date: 20060501
  Serious: Yes (Other)
  Sender: FDA-Public Use
  Company Number: EWC050945597

PATIENT
  Sex: Male
  Weight: 3 kg

DRUGS (2)
  1. ZYPREXA [Suspect]
  2. AMITRIPTYLINE HCL [Concomitant]

REACTIONS (6)
  - CAESAREAN SECTION [None]
  - DRUG EXPOSURE DURING PREGNANCY [None]
  - DRUG EXPOSURE VIA BREAST MILK [None]
  - HYPOGLYCAEMIA NEONATAL [None]
  - NEONATAL OVERSEDATION [None]
  - POOR WEIGHT GAIN NEONATAL [None]
